FAERS Safety Report 18844463 (Version 1)
Quarter: 2021Q1

REPORT INFORMATION
  Report Type: Report from Study
  Country: US (occurrence: US)
  Receive Date: 20210203
  Receipt Date: 20210203
  Transmission Date: 20210419
  Serious: No
  Sender: FDA-Public Use
  Company Number: US-EXELIXIS-CABO-20026874

PATIENT
  Sex: Male

DRUGS (12)
  1. PROCHLORPERAZINE. [Concomitant]
     Active Substance: PROCHLORPERAZINE
  2. MEROPENEM. [Concomitant]
     Active Substance: MEROPENEM
  3. XGEVA [Concomitant]
     Active Substance: DENOSUMAB
  4. TOUJEO [Concomitant]
     Active Substance: INSULIN GLARGINE
  5. ZOFRAN [Concomitant]
     Active Substance: ONDANSETRON HYDROCHLORIDE
  6. CALCIUM [Concomitant]
     Active Substance: CALCIUM
  7. SIMVASTATIN. [Concomitant]
     Active Substance: SIMVASTATIN
  8. CABOMETYX [Suspect]
     Active Substance: CABOZANTINIB S-MALATE
     Indication: THYROID CANCER
     Dosage: 60 MG, QD
     Dates: start: 20191011
  9. CABOMETYX [Suspect]
     Active Substance: CABOZANTINIB S-MALATE
     Dosage: 40 MG, QD
     Route: 048
  10. MAGNESIUM [Concomitant]
     Active Substance: MAGNESIUM
  11. GABAPENTIN. [Concomitant]
     Active Substance: GABAPENTIN
  12. LEVOTHYROXINE. [Concomitant]
     Active Substance: LEVOTHYROXINE

REACTIONS (6)
  - Skin papilloma [Unknown]
  - Wound [Recovering/Resolving]
  - Skin exfoliation [Recovering/Resolving]
  - Diarrhoea [Recovering/Resolving]
  - Off label use [Unknown]
  - Impaired healing [Unknown]
